FAERS Safety Report 8080824-2 (Version None)
Quarter: 2012Q1

REPORT INFORMATION
  Report Type: 
  Country: None (occurrence: None)
  Receive Date: 20120130
  Receipt Date: 20120124
  Transmission Date: 20120608
  Serious: Yes (Death)
  Sender: FDA-Public Use
  Company Number: US-GILEAD-2012-0049791

PATIENT
  Sex: Male

DRUGS (2)
  1. NITROGLYCERIN [Concomitant]
  2. LETAIRIS [Suspect]
     Indication: PULMONARY ARTERIAL HYPERTENSION
     Dosage: 5 MG, UNK
     Route: 048
     Dates: start: 20111228, end: 20120121

REACTIONS (2)
  - MYOCARDIAL INFARCTION [None]
  - CHEST PAIN [None]
